FAERS Safety Report 11258877 (Version 1)
Quarter: 2015Q3

REPORT INFORMATION
  Report Type: Spontaneous
  Country: US (occurrence: US)
  Receive Date: 20150710
  Receipt Date: 20150710
  Transmission Date: 20151125
  Serious: No
  Sender: FDA-Public Use
  Company Number: US-PURDUE-USA-2014-0117128

PATIENT
  Sex: Female
  Weight: 67.57 kg

DRUGS (1)
  1. BUTRANS [Suspect]
     Active Substance: BUPRENORPHINE
     Indication: BACK PAIN
     Dosage: 20 MCG/HR, WEEKLY
     Route: 062
     Dates: start: 20130204, end: 20140902

REACTIONS (3)
  - Breakthrough pain [Unknown]
  - Inappropriate schedule of drug administration [Unknown]
  - Inadequate analgesia [Unknown]
